FAERS Safety Report 4880058-6 (Version None)
Quarter: 2005Q4

REPORT INFORMATION
  Report Type: 
  Country: None (occurrence: None)
  Receive Date: 20051223
  Receipt Date: 20050909
  Transmission Date: 20060501
  Serious: Yes (Hospitalization)
  Sender: FDA-Public Use
  Company Number: 05P-163-0310663-00

PATIENT
  Age: 79 Year
  Sex: Female
  Weight: 60.3284 kg

DRUGS (16)
  1. HUMIRA [Suspect]
     Indication: RHEUMATOID ARTHRITIS
     Dosage: 40 MG, 1 IN 2 WK, SUBCUTANEOUS
     Route: 058
     Dates: start: 20040701
  2. HUMIRA [Suspect]
     Indication: RHEUMATOID ARTHRITIS
     Dosage: 40 MG, 1 IN 2 WK, SUBCUTANEOUS
     Route: 058
     Dates: start: 20040701
  3. METHOTREXATE SODIUM [Concomitant]
  4. PREDNISONE [Concomitant]
  5. CELECOXIB [Concomitant]
  6. RISEDRONATE SODIUM [Concomitant]
  7. FOLIC ACID [Concomitant]
  8. CYANOCOBALAMIN [Concomitant]
  9. MULTIVITAMIN [Concomitant]
  10. ESTROGENS CONJUGATED [Concomitant]
  11. CALCIUM WITH VITAMIN D [Concomitant]
  12. PARACETAMOL [Concomitant]
  13. HYZAAR [Concomitant]
  14. LABETALOL HCL [Concomitant]
  15. FAMOTIDINE [Concomitant]
  16. AMLODIPINE BESYLATE [Concomitant]

REACTIONS (3)
  - ATRIAL FIBRILLATION [None]
  - MALAISE [None]
  - SYNCOPE [None]
